FAERS Safety Report 8696015 (Version 2)
Quarter: 2012Q4

REPORT INFORMATION
  Report Type: 
  Country: US (occurrence: US)
  Receive Date: 20120801
  Receipt Date: 20120920
  Transmission Date: 20130627
  Serious: Yes (Hospitalization)
  Sender: FDA-Public Use
  Company Number: US-BIOGENIDEC-2012BI027568

PATIENT
  Age: 45 Year
  Sex: Male
  Weight: 107 kg

DRUGS (6)
  1. TYSABRI [Suspect]
     Indication: MULTIPLE SCLEROSIS
     Route: 042
     Dates: start: 20080813
  2. AVONEX [Concomitant]
     Indication: MULTIPLE SCLEROSIS
     Route: 030
     Dates: end: 20060101
  3. LISINOPRIL [Concomitant]
     Route: 048
  4. TIZANIDINE [Concomitant]
     Indication: MUSCLE SPASMS
  5. BACLOFEN [Concomitant]
     Indication: MUSCLE SPASMS
     Route: 048
  6. VITAMIN D [Concomitant]

REACTIONS (4)
  - Multiple sclerosis relapse [Unknown]
  - Balance disorder [Unknown]
  - Muscle spasticity [Unknown]
  - Mobility decreased [Unknown]
